FAERS Safety Report 7751976-6 (Version None)
Quarter: 2011Q3

REPORT INFORMATION
  Report Type: 
  Country: None (occurrence: None)
  Receive Date: 20110915
  Receipt Date: 20110907
  Transmission Date: 20111222
  Serious: Yes (Hospitalization)
  Sender: FDA-Public Use
  Company Number: US-SANOFI-AVENTIS-2011SA059052

PATIENT
  Age: 49 Year
  Sex: Female

DRUGS (14)
  1. PLAVIX [Suspect]
     Route: 048
     Dates: start: 20010101, end: 20110801
  2. FOLIC ACID [Concomitant]
  3. TRAZODONE HCL [Concomitant]
  4. METOPROLOL [Concomitant]
  5. DICLOFENAC SODIUM [Concomitant]
  6. LOSARTAN POTASSIUM [Concomitant]
  7. AMLODIPINE [Concomitant]
  8. RANITIDINE [Concomitant]
  9. FUROSEMIDE [Concomitant]
  10. LOVENOX [Concomitant]
  11. SIMVASTATIN [Concomitant]
  12. KLOR-CON [Concomitant]
  13. HUMALOG [Concomitant]
  14. LANTUS [Concomitant]

REACTIONS (3)
  - ILL-DEFINED DISORDER [None]
  - FAECES DISCOLOURED [None]
  - CONTUSION [None]
